FAERS Safety Report 8306219-1 (Version None)
Quarter: 2012Q2

REPORT INFORMATION
  Report Type: 
  Country: None (occurrence: None)
  Receive Date: 20120423
  Receipt Date: 20120413
  Transmission Date: 20120825
  Serious: Yes (Death)
  Sender: FDA-Public Use
  Company Number: CO-ROCHE-1059598

PATIENT
  Sex: Female

DRUGS (1)
  1. ACTEMRA [Suspect]
     Indication: RHEUMATOID ARTHRITIS
     Dosage: DATE OF LAST INFUSION: 29/SE/2011
     Route: 042
     Dates: start: 20100508, end: 20110929

REACTIONS (7)
  - CEREBROVASCULAR ACCIDENT [None]
  - VOMITING [None]
  - HEADACHE [None]
  - PNEUMONIA [None]
  - PYREXIA [None]
  - CONVULSION [None]
  - URINARY TRACT INFECTION [None]
